FAERS Safety Report 8098048-1 (Version None)
Quarter: 2012Q1

REPORT INFORMATION
  Report Type: 
  Country: None (occurrence: None)
  Receive Date: 20120128
  Receipt Date: 20110823
  Transmission Date: 20120608
  Serious: No
  Sender: FDA-Public Use
  Company Number: US-ABBOTT-11P-163-0842243-00

PATIENT
  Sex: Female

DRUGS (1)
  1. HUMIRA [Suspect]
     Indication: PSORIASIS
     Route: 058
     Dates: start: 20110524, end: 20110704

REACTIONS (8)
  - COUGH [None]
  - BRONCHITIS [None]
  - DIARRHOEA [None]
  - ABDOMINAL PAIN UPPER [None]
  - PRURITUS [None]
  - WHEEZING [None]
  - PYREXIA [None]
  - ARTHRALGIA [None]
